FAERS Safety Report 23633598 (Version 2)
Quarter: 2024Q1

REPORT INFORMATION
  Report Type: Spontaneous
  Country: JP (occurrence: JP)
  Receive Date: 20240314
  Receipt Date: 20240318
  Transmission Date: 20240410
  Serious: Yes (Death)
  Sender: FDA-Public Use
  Company Number: JP-MTPC-MTPC2024-0005047

PATIENT
  Age: 7 Decade
  Sex: Male

DRUGS (2)
  1. NOVASTAN [Suspect]
     Active Substance: ARGATROBAN
     Indication: Cerebral infarction
     Route: 065
  2. EDARAVONE [Suspect]
     Active Substance: EDARAVONE
     Indication: Cerebral infarction
     Route: 065

REACTIONS (1)
  - Cerebral haemorrhage [Fatal]
